FAERS Safety Report 4540412-9 (Version None)
Quarter: 2004Q4

REPORT INFORMATION
  Report Type: 
  Country: None (occurrence: None)
  Receive Date: 20041228
  Receipt Date: 20041217
  Transmission Date: 20050328
  Serious: Yes (Other)
  Sender: FDA-Public Use
  Company Number: 2004114432

PATIENT
  Age: 70 Year
  Sex: Male
  Weight: 81.6475 kg

DRUGS (2)
  1. VISINE EYE DROPS [Suspect]
     Indication: EYE REDNESS
     Dosage: 1 DROP PER EYE 2X A DAY, OPHTHALMIC
     Route: 047
  2. OPHTHALMOLOGICALS (OPHTHALMOLOGICALS) [Concomitant]

REACTIONS (3)
  - CATARACT OPERATION [None]
  - DRUG INEFFECTIVE [None]
  - EYE REDNESS [None]
